FAERS Safety Report 20752237 (Version 3)
Quarter: 2022Q2

REPORT INFORMATION
  Report Type: Spontaneous
  Country: US (occurrence: US)
  Receive Date: 20220426
  Receipt Date: 20220516
  Transmission Date: 20220721
  Serious: Yes (Other)
  Sender: FDA-Public Use
  Company Number: US-NOVARTISTESTPH-NVSC2022US096229

PATIENT
  Sex: Male
  Weight: 48.4 kg

DRUGS (3)
  1. KYMRIAH [Suspect]
     Active Substance: TISAGENLECLEUCEL
     Indication: Acute lymphocytic leukaemia
     Dosage: 2.7X10^6 CAR+ VIABLE T CELLS PER KG
     Route: 042
     Dates: start: 20220316, end: 20220316
  2. FLUDARABINE [Concomitant]
     Active Substance: FLUDARABINE PHOSPHATE
     Indication: Lymphodepletion
     Dosage: 44MG IV ONCE DAILY X4 DAYS (30MG/M2)
     Route: 042
     Dates: start: 20220310, end: 20220313
  3. CYCLOPHOSPHAMIDE [Concomitant]
     Active Substance: CYCLOPHOSPHAMIDE
     Indication: Lymphodepletion
     Dosage: 735MG IV ONCE DAILY X2 DAYS (500MG/M2)
     Route: 042
     Dates: start: 20220310, end: 20220311

REACTIONS (2)
  - Acute lymphocytic leukaemia [Not Recovered/Not Resolved]
  - Malignant neoplasm progression [Not Recovered/Not Resolved]
